FAERS Safety Report 9226652 (Version 4)
Quarter: 2014Q4

REPORT INFORMATION
  Report Type: Spontaneous
  Country: US (occurrence: US)
  Receive Date: 20130412
  Receipt Date: 20141211
  Transmission Date: 20150529
  Serious: Yes (Hospitalization, Other)
  Sender: FDA-Public Use
  Company Number: US-PFIZER INC-2013112750

PATIENT
  Age: 12 Week
  Sex: Female

DRUGS (4)
  1. MAGNESIUM CITRATE. [Concomitant]
     Active Substance: MAGNESIUM CITRATE
     Indication: SEIZURE
     Dosage: 1/4 TSP, BID
     Dates: start: 20121113
  2. TRILEPTAL [Concomitant]
     Active Substance: OXCARBAZEPINE
     Indication: SEIZURE
     Dosage: 4 ML, 2X/DAY
     Dates: start: 20120730
  3. IBUPROFEN. [Concomitant]
     Active Substance: IBUPROFEN
     Indication: PYREXIA
     Dosage: UNK, AS NEEDED
  4. RAPAMUNE [Suspect]
     Active Substance: SIROLIMUS
     Dosage: 0.8 ML, DAILY
     Route: 048
     Dates: start: 20120607

REACTIONS (5)
  - Respiratory distress [Recovered/Resolved]
  - Off label use [Unknown]
  - Ear infection [Unknown]
  - Malaise [Unknown]
  - Pneumonia viral [Recovered/Resolved]

NARRATIVE: CASE EVENT DATE: 20120607
